FAERS Safety Report 21412106 (Version 3)
Quarter: 2022Q4

REPORT INFORMATION
  Report Type: Report from Study
  Country: TW (occurrence: TW)
  Receive Date: 20221005
  Receipt Date: 20221026
  Transmission Date: 20230112
  Serious: Yes (Hospitalization, Other)
  Sender: FDA-Public Use
  Company Number: TW-JNJFOC-20220954702

PATIENT
  Age: 64 Year
  Sex: Female
  Weight: 51.5 kg

DRUGS (17)
  1. AMIVANTAMAB [Suspect]
     Active Substance: AMIVANTAMAB
     Indication: Non-small cell lung cancer metastatic
     Route: 065
     Dates: start: 20220616, end: 20220822
  2. CARBOPLATIN [Concomitant]
     Active Substance: CARBOPLATIN
     Indication: Non-small cell lung cancer metastatic
     Route: 065
     Dates: start: 20220716, end: 20220822
  3. PEMETREXED [Concomitant]
     Active Substance: PEMETREXED
     Indication: Non-small cell lung cancer metastatic
     Route: 065
     Dates: start: 20220616, end: 20220822
  4. DAILYCARE ACTIBEST [Concomitant]
     Indication: Nutritional supplementation
     Route: 048
     Dates: start: 20210802
  5. ULSTOP [FAMOTIDINE] [Concomitant]
     Indication: Gastrooesophageal reflux disease
     Route: 048
     Dates: start: 20210802
  6. NINCORT [Concomitant]
     Indication: Candida infection
     Dosage: DOSE 1, UNITS NOT REPORTED
     Route: 061
     Dates: start: 20220628
  7. MOPRIDE [MOSAPRIDE CITRATE] [Concomitant]
     Indication: Gastrooesophageal reflux disease
     Route: 048
     Dates: start: 20220727
  8. BROTIZOLAM [Concomitant]
     Active Substance: BROTIZOLAM
     Indication: Insomnia
     Route: 048
     Dates: start: 20220727
  9. MIRTAPINE [Concomitant]
     Indication: Insomnia
     Route: 048
     Dates: start: 20220727
  10. ZOPICLONE [Concomitant]
     Active Substance: ZOPICLONE
     Indication: Insomnia
     Route: 048
     Dates: start: 20220809
  11. HYPROMELLOSES [Concomitant]
     Active Substance: HYPROMELLOSES
     Indication: Dry eye
     Route: 047
     Dates: start: 20220809
  12. SUZOLE [Concomitant]
     Indication: Dry eye
     Route: 047
     Dates: start: 20220809
  13. DIETARY SUPPLEMENT\HERBALS\MILK THISTLE [Concomitant]
     Active Substance: DIETARY SUPPLEMENT\HERBALS\MILK THISTLE
     Indication: Alanine aminotransferase increased
     Route: 048
     Dates: start: 20220822
  14. TETRACYCLINE [Concomitant]
     Active Substance: TETRACYCLINE
     Indication: Paronychia
     Route: 061
     Dates: start: 20220831
  15. CEFACLOR [Concomitant]
     Active Substance: CEFACLOR
     Indication: Urinary tract infection
     Route: 048
     Dates: start: 20220912
  16. CURAM [AMOXICILLIN;CLAVULANIC ACID] [Concomitant]
     Indication: Urinary tract infection
     Dosage: AMOXICILLIN 875 + CLAVULANATE 125 MG
     Route: 048
     Dates: start: 20220919, end: 20220925
  17. BENZYDAMINE HYDROCHLORIDE [Concomitant]
     Active Substance: BENZYDAMINE HYDROCHLORIDE
     Indication: Prophylaxis
     Route: 061
     Dates: start: 20220929, end: 20221001

REACTIONS (1)
  - Embolism [Recovered/Resolved]

NARRATIVE: CASE EVENT DATE: 20220926
